FAERS Safety Report 9630156 (Version 2)
Quarter: 2013Q4

REPORT INFORMATION
  Report Type: Spontaneous
  Country: FR (occurrence: FR)
  Receive Date: 20131017
  Receipt Date: 20131017
  Transmission Date: 20140711
  Serious: Yes (Hospitalization, Other)
  Sender: FDA-Public Use
  Company Number: FR-PFIZER INC-A02200703264

PATIENT
  Age: 67 Year
  Sex: Male

DRUGS (6)
  1. FLUOROURACILE PFIZER [Suspect]
     Indication: LARYNGEAL CANCER
     Dosage: 8740 MG, 1X/DAY
     Route: 042
     Dates: start: 20070711, end: 20070716
  2. SOLU-MEDROL [Suspect]
     Indication: LARYNGEAL CANCER
     Dosage: 60 MG, 1X/DAY
     Route: 040
     Dates: start: 20070711, end: 20070715
  3. CISPLATIN [Suspect]
     Indication: LARYNGEAL CANCER
     Dosage: 175 MG, 1X/DAY
     Route: 042
     Dates: start: 20070711, end: 200707
  4. TAXOTERE [Suspect]
     Indication: LARYNGEAL CANCER
     Dosage: 175 MG, 1X/DAY
     Route: 042
     Dates: start: 20070711, end: 200707
  5. ZOPHREN [Suspect]
     Indication: PREMEDICATION
     Dosage: 8 MG, 1X/DAY
     Route: 040
     Dates: start: 20070711, end: 20070715
  6. PLITICAN [Suspect]
     Indication: PREMEDICATION
     Dosage: 100 MG, 1X/DAY
     Route: 040
     Dates: start: 20070711, end: 200707

REACTIONS (4)
  - Mucosal inflammation [Recovered/Resolved]
  - Diarrhoea [Recovered/Resolved]
  - Febrile bone marrow aplasia [Recovered/Resolved]
  - Sepsis [Recovered/Resolved]
